FAERS Safety Report 11326541 (Version 1)
Quarter: 2015Q3

REPORT INFORMATION
  Report Type: Spontaneous
  Country: US (occurrence: US)
  Receive Date: 20150731
  Receipt Date: 20150731
  Transmission Date: 20151125
  Serious: No
  Sender: FDA-Public Use
  Company Number: US-ROCHE-1366969

PATIENT
  Sex: Female

DRUGS (4)
  1. PEGASYS [Suspect]
     Active Substance: PEGINTERFERON ALFA-2A
     Indication: PRODUCT USED FOR UNKNOWN INDICATION
     Route: 058
  2. PEGASYS [Suspect]
     Active Substance: PEGINTERFERON ALFA-2A
     Route: 058
  3. RIBAVIRIN. [Suspect]
     Active Substance: RIBAVIRIN
     Indication: PRODUCT USED FOR UNKNOWN INDICATION
     Route: 065
  4. BOCEPREVIR [Concomitant]
     Active Substance: BOCEPREVIR

REACTIONS (6)
  - Platelet count decreased [Unknown]
  - Anaemia [Unknown]
  - Neutropenia [Not Recovered/Not Resolved]
  - Accidental exposure to product [Unknown]
  - Product quality issue [Unknown]
  - Poor quality drug administered [Unknown]
